FAERS Safety Report 6368645-X (Version None)
Quarter: 2009Q3

REPORT INFORMATION
  Report Type: 
  Country: None (occurrence: None)
  Receive Date: 20090917
  Receipt Date: 20090917
  Transmission Date: 20100115
  Serious: Yes (Life-Threatening, Hospitalization)
  Sender: FDA-Public Use
  Company Number: None

PATIENT
  Age: 68 Year
  Sex: Male
  Weight: 63.5036 kg

DRUGS (2)
  1. LEVAQUIN [Suspect]
     Indication: SURGERY
     Dosage: 250MG 1 A DAY
     Dates: start: 20090406, end: 20090409
  2. LEVAQUIN [Suspect]
     Indication: SURGERY
     Dosage: 250MG 1 A DAY
     Dates: start: 20090413, end: 20090420

REACTIONS (2)
  - DIALYSIS [None]
  - RENAL FAILURE [None]
